FAERS Safety Report 7345999-9 (Version None)
Quarter: 2011Q1

REPORT INFORMATION
  Report Type: 
  Country: None (occurrence: None)
  Receive Date: 20110307
  Receipt Date: 20110307
  Transmission Date: 20110831
  Serious: No
  Sender: FDA-Public Use
  Company Number: None

PATIENT
  Sex: Male
  Weight: 77.1115 kg

DRUGS (1)
  1. METFORMIN HCL [Suspect]
     Indication: TYPE 2 DIABETES MELLITUS
     Dosage: 1000MG BID PO
     Route: 048
     Dates: start: 20100811, end: 20110228

REACTIONS (5)
  - TREATMENT FAILURE [None]
  - PRODUCT SUBSTITUTION ISSUE [None]
  - PRODUCT ODOUR ABNORMAL [None]
  - BLOOD GLUCOSE INCREASED [None]
  - GLYCOSYLATED HAEMOGLOBIN INCREASED [None]
